FAERS Safety Report 21782903 (Version 1)
Quarter: 2022Q4

REPORT INFORMATION
  Report Type: Spontaneous
  Country: JP (occurrence: JP)
  Receive Date: 20221227
  Receipt Date: 20221227
  Transmission Date: 20230112
  Serious: Yes (Death, Hospitalization)
  Sender: FDA-Public Use
  Company Number: JP-MTPC-MTPC2022-0035246

PATIENT
  Age: 82 Year
  Sex: Male

DRUGS (3)
  1. REMICADE [Suspect]
     Active Substance: INFLIXIMAB
     Indication: Myelodysplastic syndrome
     Dosage: 5 MILLIGRAM/KILOGRAM
     Route: 065
  2. COLCHICINE [Concomitant]
     Active Substance: COLCHICINE
     Indication: Behcet^s syndrome
     Route: 048
  3. PREDNISOLONE [Concomitant]
     Active Substance: PREDNISOLONE
     Indication: Behcet^s syndrome
     Dosage: 20 MILLIGRAM, QD
     Route: 048

REACTIONS (4)
  - Aspergillus infection [Fatal]
  - Ulcer [Unknown]
  - Functional gastrointestinal disorder [Unknown]
  - Abscess [Unknown]
